FAERS Safety Report 13881724 (Version 1)
Quarter: 2017Q3

REPORT INFORMATION
  Report Type: Spontaneous
  Country: US (occurrence: US)
  Receive Date: 20170818
  Receipt Date: 20170818
  Transmission Date: 20171127
  Serious: Yes (Other)
  Sender: FDA-Public Use
  Company Number: US-JNJFOC-20170815540

PATIENT
  Age: 62 Year
  Sex: Male

DRUGS (2)
  1. LEVEMIR [Concomitant]
     Active Substance: INSULIN DETEMIR
     Indication: DIABETES MELLITUS INADEQUATE CONTROL
     Route: 065
     Dates: end: 201604
  2. INVOKANA [Suspect]
     Active Substance: CANAGLIFLOZIN
     Indication: DIABETES MELLITUS INADEQUATE CONTROL
     Route: 048
     Dates: end: 201604

REACTIONS (3)
  - Fungal infection [Unknown]
  - Polyuria [Unknown]
  - Ketoacidosis [Unknown]

NARRATIVE: CASE EVENT DATE: 201604
